FAERS Safety Report 9195916 (Version 1)
Quarter: 2013Q1

REPORT INFORMATION
  Report Type: Spontaneous
  Country: US (occurrence: US)
  Receive Date: 20130328
  Receipt Date: 20130328
  Transmission Date: 20140127
  Serious: Yes (Other)
  Sender: FDA-Public Use
  Company Number: US-AMGEN-USASP2013020586

PATIENT
  Sex: Female

DRUGS (2)
  1. NEULASTA [Suspect]
     Indication: PROPHYLAXIS
     Dosage: UNK
  2. CHEMOTHERAPEUTICS [Concomitant]
     Dosage: UNK

REACTIONS (2)
  - Loss of consciousness [Recovered/Resolved]
  - Bone pain [Not Recovered/Not Resolved]
